FAERS Safety Report 4996947-8 (Version None)
Quarter: 2006Q2

REPORT INFORMATION
  Report Type: 
  Country: None (occurrence: None)
  Receive Date: 20060509
  Receipt Date: 20060102
  Transmission Date: 20061013
  Serious: Yes (Hospitalization)
  Sender: FDA-Public Use
  Company Number: US-SANOFI-SYNTHELABO-A03200600049

PATIENT
  Sex: Female

DRUGS (2)
  1. AMBIEN [Suspect]
     Indication: INSOMNIA
     Route: 048
     Dates: start: 20050101, end: 20060123
  2. LEXAPRO [Concomitant]
     Dosage: UNK
     Route: 048

REACTIONS (8)
  - ARTHRALGIA [None]
  - CONFUSIONAL STATE [None]
  - DRUG INEFFECTIVE [None]
  - FALL [None]
  - HEAD INJURY [None]
  - SLEEP WALKING [None]
  - SOMNOLENCE [None]
  - UPPER LIMB FRACTURE [None]
